FAERS Safety Report 5705027-5 (Version None)
Quarter: 2008Q2

REPORT INFORMATION
  Report Type: 
  Country: None (occurrence: None)
  Receive Date: 20080414
  Receipt Date: 20080402
  Transmission Date: 20081010
  Serious: Yes (Hospitalization)
  Sender: FDA-Public Use
  Company Number: US-PFIZER INC-2008030408

PATIENT
  Sex: Male
  Weight: 138.3 kg

DRUGS (2)
  1. CHANTIX [Suspect]
     Indication: SMOKING CESSATION THERAPY
     Dates: start: 20080324, end: 20080330
  2. LOTREL [Concomitant]
     Indication: HYPERTENSION

REACTIONS (1)
  - SURGERY [None]
